FAERS Safety Report 5906845-0 (Version None)
Quarter: 2008Q3

REPORT INFORMATION
  Report Type: 
  Country: None (occurrence: None)
  Receive Date: 20080929
  Receipt Date: 20080612
  Transmission Date: 20090109
  Serious: Yes (Death, Other)
  Sender: FDA-Public Use
  Company Number: 2008US001589

PATIENT
  Age: 40 Year
  Sex: Female

DRUGS (3)
  1. PROGRAF [Suspect]
     Indication: LUNG TRANSPLANT
     Dosage: 5 MG, BID, ORAL
     Route: 048
  2. MYCOPHENOLATE MOFETIL [Suspect]
     Indication: LUNG TRANSPLANT
     Dosage: 1500 MG, BID, ORAL
     Route: 048
  3. PREDNISOLONE ACETATE [Concomitant]

REACTIONS (6)
  - DEPRESSED LEVEL OF CONSCIOUSNESS [None]
  - DISEASE COMPLICATION [None]
  - FUNGAL ABSCESS CENTRAL NERVOUS SYSTEM [None]
  - INFECTION [None]
  - NEUROLOGICAL SYMPTOM [None]
  - POST PROCEDURAL HAEMATOMA [None]
